FAERS Safety Report 5741108-8 (Version None)
Quarter: 2008Q2

REPORT INFORMATION
  Report Type: 
  Country: None (occurrence: None)
  Receive Date: 20080516
  Receipt Date: 20080505
  Transmission Date: 20081010
  Serious: Yes (Hospitalization)
  Sender: FDA-Public Use
  Company Number: FR-PFIZER INC-2008040036

PATIENT
  Sex: Female

DRUGS (19)
  1. LYRICA [Suspect]
     Route: 048
     Dates: start: 20080111, end: 20080121
  2. NEURONTIN [Suspect]
     Dosage: DAILY DOSE:2400MG
     Route: 048
  3. VANCOMYCIN [Suspect]
     Route: 042
     Dates: start: 20080116, end: 20080117
  4. FUSIDIC ACID [Suspect]
     Route: 048
     Dates: start: 20080117, end: 20080121
  5. SPASFON [Suspect]
     Route: 048
     Dates: start: 20080119, end: 20080121
  6. DUPHALAC [Suspect]
     Route: 048
  7. ILOMEDINE [Suspect]
     Route: 042
     Dates: start: 20080116, end: 20080117
  8. RIFADIN [Suspect]
     Route: 048
     Dates: start: 20080117, end: 20080121
  9. ACUPAN [Concomitant]
     Route: 042
  10. DOMPERIDONE [Concomitant]
     Route: 048
  11. GAVISCON [Concomitant]
     Route: 048
  12. TROLOVOL [Concomitant]
     Route: 048
  13. LAROXYL [Concomitant]
     Route: 048
  14. NEXIUM [Concomitant]
     Route: 048
  15. DOLIPRANE [Concomitant]
     Route: 048
  16. ASPIRIN [Concomitant]
     Route: 048
  17. LOXEN [Concomitant]
     Route: 048
  18. PRAVASTATIN SODIUM [Concomitant]
     Route: 048
  19. VASOBRAL [Concomitant]
     Route: 048

REACTIONS (3)
  - AGRANULOCYTOSIS [None]
  - LEUKOPENIA [None]
  - THROMBOCYTOPENIA [None]
